FAERS Safety Report 6355917-8 (Version None)
Quarter: 2009Q3

REPORT INFORMATION
  Report Type: 
  Country: None (occurrence: None)
  Receive Date: 20090911
  Receipt Date: 20090911
  Transmission Date: 20100115
  Serious: Yes (Hospitalization)
  Sender: FDA-Public Use
  Company Number: None

PATIENT
  Age: 42 Year
  Sex: Female
  Weight: 119.296 kg

DRUGS (3)
  1. TOPIRAMATE [Suspect]
     Indication: HEADACHE
     Dosage: 100MG 1 TIME DAILY NIGHTLY
     Dates: start: 20090527, end: 20090606
  2. TOPIRAMATE [Suspect]
     Indication: PSORIASIS
     Dosage: 100MG 1 TIME DAILY NIGHTLY
     Dates: start: 20090527, end: 20090606
  3. TOPIRAMATE [Suspect]
     Indication: WEIGHT CONTROL
     Dosage: 100MG 1 TIME DAILY NIGHTLY
     Dates: start: 20090527, end: 20090606

REACTIONS (4)
  - BLINDNESS [None]
  - EYE PAIN [None]
  - VISUAL IMPAIRMENT [None]
  - VOMITING [None]
